FAERS Safety Report 24607347 (Version 1)
Quarter: 2024Q4

REPORT INFORMATION
  Report Type: Report from Study
  Country: US (occurrence: US)
  Receive Date: 20241112
  Receipt Date: 20241112
  Transmission Date: 20250115
  Serious: No
  Sender: SANDOZ
  Company Number: US-SANDOZ-SDZ2024US094282

PATIENT
  Sex: Male

DRUGS (2)
  1. OMNITROPE [Suspect]
     Active Substance: SOMATROPIN
     Indication: Hypopituitarism
     Dosage: 1.8 MG 2 DOSE EVERY N/A N/A
     Route: 058
     Dates: start: 20241007, end: 20241111
  2. OMNITROPE [Suspect]
     Active Substance: SOMATROPIN
     Indication: Hypopituitarism
     Dosage: 1.8 MG 2 DOSE EVERY N/A N/A
     Route: 058
     Dates: start: 20241007, end: 20241111

REACTIONS (1)
  - Injection site pain [Not Recovered/Not Resolved]
